FAERS Safety Report 6394715-6 (Version None)
Quarter: 2009Q4

REPORT INFORMATION
  Report Type: 
  Country: None (occurrence: None)
  Receive Date: 20091009
  Receipt Date: 20090928
  Transmission Date: 20100525
  Serious: Yes (Hospitalization, Other)
  Sender: FDA-Public Use
  Company Number: US-PFIZER INC-2005104247

PATIENT
  Sex: Female

DRUGS (8)
  1. PROVERA [Suspect]
     Indication: HORMONE REPLACEMENT THERAPY
     Dosage: 2.5 MG, UNK
     Route: 048
     Dates: start: 19910101, end: 20010101
  2. MEDROXYPROGESTERONE AND MEDROXYPROGESTERONE ACETATE [Suspect]
     Indication: HORMONE REPLACEMENT THERAPY
     Dosage: 2.5 MG, UNK
     Route: 048
     Dates: start: 19990101, end: 20010101
  3. PREMARIN [Suspect]
     Indication: HORMONE REPLACEMENT THERAPY
     Dosage: 0.625 MG, UNK
     Route: 065
     Dates: start: 19910101, end: 20010101
  4. DITROPAN XL [Concomitant]
     Indication: URINARY INCONTINENCE
     Dosage: UNK
     Dates: start: 19961121, end: 20011015
  5. SEROQUEL [Concomitant]
     Indication: INSOMNIA
     Dosage: UNK
  6. MIRTAZAPINE [Concomitant]
     Indication: INSOMNIA
     Dosage: UNK
  7. CIPROFLOXACIN [Concomitant]
     Indication: URINARY TRACT INFECTION
     Dosage: UNK
     Dates: start: 20010813, end: 20010818
  8. DIAMOX SRC [Concomitant]
     Dosage: UNK
     Dates: start: 19620511, end: 20020519

REACTIONS (1)
  - BREAST CANCER [None]
